FAERS Safety Report 9820030 (Version 3)
Quarter: 2014Q1

REPORT INFORMATION
  Report Type: Report from Study
  Country: CA (occurrence: CA)
  Receive Date: 20140116
  Receipt Date: 20140130
  Transmission Date: 20141002
  Serious: Yes (Death, Other)
  Sender: FDA-Public Use
  Company Number: CA-ROCHE-1306606

PATIENT
  Age: 26 Year
  Sex: Female
  Weight: 62.8 kg

DRUGS (6)
  1. AVASTIN [Suspect]
     Indication: GLIOBLASTOMA MULTIFORME
     Route: 042
     Dates: start: 20130923, end: 20131227
  2. TRILEPTAL [Concomitant]
  3. KEPPRA [Concomitant]
  4. CLOBAZAM [Concomitant]
  5. TYLENOL [Concomitant]
  6. FOLIC ACID [Concomitant]

REACTIONS (5)
  - Death [Fatal]
  - Dysstasia [Unknown]
  - Sinusitis [Unknown]
  - Fatigue [Unknown]
  - Asthenia [Unknown]
